FAERS Safety Report 9030858 (Version 1)
Quarter: 2013Q1

REPORT INFORMATION
  Report Type: Report from Study
  Country: CA (occurrence: CA)
  Receive Date: 20130123
  Receipt Date: 20130123
  Transmission Date: 20140127
  Serious: Yes (Other)
  Sender: FDA-Public Use
  Company Number: CA-JNJFOC-20130107992

PATIENT
  Age: 61 Year
  Sex: Female
  Weight: 61 kg

DRUGS (2)
  1. REMICADE [Suspect]
     Indication: COLITIS ULCERATIVE
     Route: 042
     Dates: start: 20120802
  2. PREDNISONE [Concomitant]
     Route: 048
     Dates: start: 20120709

REACTIONS (2)
  - Wrist fracture [Recovering/Resolving]
  - Conjunctivitis infective [Recovering/Resolving]
